FAERS Safety Report 4289205-0 (Version None)
Quarter: 2004Q1

REPORT INFORMATION
  Report Type: 
  Country: None (occurrence: None)
  Receive Date: 20040206
  Receipt Date: 20040127
  Transmission Date: 20041129
  Serious: Yes (Other)
  Sender: FDA-Public Use
  Company Number: 2003039055

PATIENT
  Age: 11 Year
  Sex: Female

DRUGS (2)
  1. DILANTIN KAPSEAL [Suspect]
     Indication: ILL-DEFINED DISORDER
  2. CARNITINE (CARNITINE) [Concomitant]

REACTIONS (4)
  - BLOOD CALCIUM ABNORMAL [None]
  - CALCINOSIS [None]
  - CONVULSION [None]
  - NERVOUS SYSTEM DISORDER [None]
